FAERS Safety Report 4606122-4 (Version None)
Quarter: 2005Q1

REPORT INFORMATION
  Report Type: 
  Country: None (occurrence: None)
  Receive Date: 20050309
  Receipt Date: 20050228
  Transmission Date: 20050727
  Serious: Yes (Hospitalization, Other)
  Sender: FDA-Public Use
  Company Number: 2004101417

PATIENT
  Sex: Female

DRUGS (3)
  1. DILANTIN [Suspect]
     Indication: ILL-DEFINED DISORDER
  2. VITAMINS (VITAMINS) [Concomitant]
  3. ALL OTHER THERAPEUTIC PRODUCTS (ALL OTHER THERAPEUTIC PRODUCTS) [Concomitant]

REACTIONS (6)
  - FEELING ABNORMAL [None]
  - GASTROINTESTINAL DISORDER [None]
  - PANCREATITIS [None]
  - PHARMACEUTICAL PRODUCT COMPLAINT [None]
  - POISONING [None]
  - TREATMENT NONCOMPLIANCE [None]
